FAERS Safety Report 14425403 (Version 1)
Quarter: 2018Q1

REPORT INFORMATION
  Report Type: Spontaneous
  Country: US (occurrence: US)
  Receive Date: 20180123
  Receipt Date: 20180123
  Transmission Date: 20180509
  Serious: No
  Sender: FDA-Public Use
  Company Number: US-PERRIGO-17US003732

PATIENT
  Age: 8 Month
  Sex: Male
  Weight: 8.16 kg

DRUGS (2)
  1. IBUPROFEN. [Suspect]
     Active Substance: IBUPROFEN
     Indication: TEETHING
     Dosage: 50 MG, PRN
     Route: 048
     Dates: start: 201704, end: 201704
  2. IBUPROFEN. [Suspect]
     Active Substance: IBUPROFEN
     Dosage: 50 MG, PRN
     Route: 048
     Dates: start: 201704, end: 201704

REACTIONS (3)
  - Diarrhoea [Recovered/Resolved]
  - Drug administered to patient of inappropriate age [Recovered/Resolved]
  - Exposure to mould [Recovered/Resolved]

NARRATIVE: CASE EVENT DATE: 201704
